FAERS Safety Report 8144397-8 (Version None)
Quarter: 2012Q1

REPORT INFORMATION
  Report Type: 
  Country: None (occurrence: None)
  Receive Date: 20120217
  Receipt Date: 20120207
  Transmission Date: 20120608
  Serious: Yes (Life-Threatening, Hospitalization)
  Sender: FDA-Public Use
  Company Number: NL-CELGENEUS-114-21880-12011106

PATIENT
  Sex: Male

DRUGS (3)
  1. ANTIBIOTICS [Concomitant]
     Indication: PROPHYLAXIS
     Route: 065
  2. REVLIMID [Suspect]
     Dosage: 15 MILLIGRAM
     Route: 048
  3. VIDAZA [Suspect]
     Route: 050

REACTIONS (3)
  - SEPTIC EMBOLUS [None]
  - PANCYTOPENIA [None]
  - STAPHYLOCOCCAL SEPSIS [None]
